FAERS Safety Report 4893268-9 (Version None)
Quarter: 2006Q1

REPORT INFORMATION
  Report Type: 
  Country: None (occurrence: None)
  Receive Date: 20060124
  Receipt Date: 20060117
  Transmission Date: 20060701
  Serious: Yes (Hospitalization, Other)
  Sender: FDA-Public Use
  Company Number: 200610207GDS

PATIENT
  Age: 69 Year
  Sex: Male
  Weight: 65 kg

DRUGS (7)
  1. BAYCIP IV              (CIPROFLOXACIN LACTATE) [Suspect]
     Indication: PYELONEPHRITIS
     Dosage: 800 MG, TOTAL DAILY, INTRAVENOUS
     Route: 042
     Dates: start: 20060101
  2. URICONT [Concomitant]
  3. ATENOLOL [Concomitant]
  4. ENALAPRIL [Concomitant]
  5. ALLOPURINOL [Concomitant]
  6. DICLOFENAC [Concomitant]
  7. LACTULOSE [Concomitant]

REACTIONS (5)
  - CONFUSIONAL STATE [None]
  - DEPRESSED LEVEL OF CONSCIOUSNESS [None]
  - DISORIENTATION [None]
  - PSYCHOMOTOR HYPERACTIVITY [None]
  - PYREXIA [None]
